FAERS Safety Report 6707701-0 (Version None)
Quarter: 2010Q2

REPORT INFORMATION
  Report Type: 
  Country: None (occurrence: None)
  Receive Date: 20100503
  Receipt Date: 20090908
  Transmission Date: 20101027
  Serious: No
  Sender: FDA-Public Use
  Company Number: US-ASTRAZENECA-2009SE11979

PATIENT
  Age: 78 Year
  Sex: Male

DRUGS (3)
  1. NEXIUM [Suspect]
     Dosage: IN EMERGENCY SITUATIONS
     Route: 048
  2. NEXIUM [Suspect]
     Route: 048
  3. OTHER [Suspect]
     Dates: start: 20020101

REACTIONS (3)
  - DRUG INEFFECTIVE [None]
  - DYSPHAGIA [None]
  - OSTEOPOROSIS [None]
